FAERS Safety Report 18032415 (Version 1)
Quarter: 2020Q3

REPORT INFORMATION
  Report Type: Spontaneous
  Country: CH (occurrence: CH)
  Receive Date: 20200716
  Receipt Date: 20200716
  Transmission Date: 20201103
  Serious: Yes (Hospitalization, Other)
  Sender: FDA-Public Use
  Company Number: CH-ASTRAZENECA-2020SE86818

PATIENT
  Age: 61 Year
  Sex: Male

DRUGS (21)
  1. VESICARE [Suspect]
     Active Substance: SOLIFENACIN SUCCINATE
     Dosage: 5MG CP: 0?0?1
     Route: 065
  2. COVERSUM N [Concomitant]
     Active Substance: PERINDOPRIL
  3. TAMSULOSINE DELAY [Concomitant]
  4. ELIQUIS [Concomitant]
     Active Substance: APIXABAN
  5. LAXOBERON [Concomitant]
     Active Substance: SODIUM PICOSULFATE
     Dosage: RESERVED IF NECESSARY, MANAGED PER PATIENT
  6. BETMIGA [Suspect]
     Active Substance: MIRABEGRON
     Dosage: 50MG CP: 0?0?1
     Route: 065
  7. EXELON [Suspect]
     Active Substance: RIVASTIGMINE TARTRATE
     Dosage: 9.5MG/24H MATRIX PATCH: 1X/D
     Route: 062
  8. MADOPAR [Concomitant]
     Active Substance: BENSERAZIDE HYDROCHLORIDE\LEVODOPA
  9. DIGOXIN JUVIS [Concomitant]
  10. BELOC ZOK [Concomitant]
     Active Substance: METOPROLOL SUCCINATE
     Route: 048
  11. LUVIT D3 [Concomitant]
     Active Substance: CHOLECALCIFEROL
  12. PONSTAN [Concomitant]
     Active Substance: MEFENAMIC ACID
     Dosage: IF REQUIRED
  13. ESCITALOPRAM [Concomitant]
     Active Substance: ESCITALOPRAM OXALATE
  14. METFIN [Concomitant]
     Active Substance: METFORMIN HYDROCHLORIDE
  15. MALTOFER FOL [Concomitant]
     Active Substance: FOLIC ACID\IRON POLYMALTOSE
  16. CARBIDOPA LEVODOPA [Concomitant]
     Active Substance: CARBIDOPA\LEVODOPA
  17. REQUIP [Concomitant]
     Active Substance: ROPINIROLE HYDROCHLORIDE
  18. BYDUREON [Concomitant]
     Active Substance: EXENATIDE
  19. DAFALGAN [Concomitant]
     Active Substance: ACETAMINOPHEN
     Dosage: RESERVED IF NECESSARY, MANAGED PER PATIENT
  20. FORXIGA [Suspect]
     Active Substance: DAPAGLIFLOZIN
     Dosage: 5MG:0?0?1
     Route: 048
  21. AMLODIPINE [Concomitant]
     Active Substance: AMLODIPINE BESYLATE

REACTIONS (2)
  - Klebsiella sepsis [Recovering/Resolving]
  - Confusional state [Recovering/Resolving]

NARRATIVE: CASE EVENT DATE: 20200611
